FAERS Safety Report 9537788 (Version 2)
Quarter: 2013Q3

REPORT INFORMATION
  Report Type: Spontaneous
  Country: JP (occurrence: JP)
  Receive Date: 20130919
  Receipt Date: 20130930
  Transmission Date: 20140515
  Serious: Yes (Other)
  Sender: FDA-Public Use
  Company Number: JP-PFIZER INC-2013263883

PATIENT
  Age: 68 Year
  Sex: Male

DRUGS (7)
  1. FLUOROURACIL [Suspect]
     Indication: PHARYNGEAL CANCER
     Dosage: 1000 MG/BODY, 5 DAYS
     Dates: start: 2008
  2. FLUOROURACIL [Suspect]
     Dosage: 1000 MG/BODY, DAY 1 TO DAY 5
     Dates: start: 200902
  3. FLUOROURACIL [Suspect]
     Dosage: 1000 MG/BODY CONTINUOUSLY
     Dates: start: 200911
  4. CISPLATIN [Concomitant]
     Indication: PHARYNGEAL CANCER
     Dosage: 100 MG/BODY
     Dates: start: 2008
  5. CISPLATIN [Concomitant]
     Dosage: 100 MG/BODY, 1 DAY
     Dates: start: 200902
  6. S-1 [Concomitant]
     Indication: CHEMOTHERAPY
     Dosage: 100 MG/DAY, 28 DAYS
     Dates: start: 2008
  7. WARFARIN [Concomitant]

REACTIONS (1)
  - Hyperammonaemic encephalopathy [Recovered/Resolved]
